FAERS Safety Report 7429923-6 (Version None)
Quarter: 2011Q2

REPORT INFORMATION
  Report Type: 
  Country: None (occurrence: None)
  Receive Date: 20110421
  Receipt Date: 20110329
  Transmission Date: 20111010
  Serious: No
  Sender: FDA-Public Use
  Company Number: US-B.I. PHARMACEUTICALS,INC./RIDGEFIELD-2011-BP-09572BP

PATIENT
  Sex: Female

DRUGS (8)
  1. COZAAR [Concomitant]
     Indication: HYPERTENSION
     Dosage: 100 MG
  2. AMLODIPINE [Concomitant]
     Indication: HYPERTENSION
     Dosage: 5 MG
     Dates: start: 20110120
  3. RANITIDINE [Concomitant]
     Indication: GASTROOESOPHAGEAL REFLUX DISEASE
     Dosage: 300 MG
  4. PRADAXA [Suspect]
     Indication: ATRIAL FIBRILLATION
     Dosage: 75 MG
     Route: 048
     Dates: start: 20110216
  5. TOPROL-XL [Concomitant]
     Indication: HYPERTENSION
     Dosage: 50 MG
     Dates: start: 20101201
  6. ACETAMINOPHEN [Concomitant]
     Indication: PAIN
  7. PRADAXA [Suspect]
     Dosage: 300 MG
     Route: 048
     Dates: start: 20101201, end: 20110215
  8. BENGAY [Concomitant]
     Indication: PAIN IN EXTREMITY
     Dates: start: 20110301

REACTIONS (3)
  - BLEEDING TIME PROLONGED [None]
  - BLEEDING TIME ABNORMAL [None]
  - COAGULATION TIME PROLONGED [None]
